FAERS Safety Report 18793972 (Version 1)
Quarter: 2021Q1

REPORT INFORMATION
  Report Type: Spontaneous
  Country: US (occurrence: US)
  Receive Date: 20210127
  Receipt Date: 20210127
  Transmission Date: 20210419
  Serious: Yes (Other)
  Sender: FDA-Public Use
  Company Number: US-HIKMA PHARMACEUTICALS USA INC.-US-H14001-21-00469

PATIENT

DRUGS (1)
  1. IFOSFAMIDE. [Suspect]
     Active Substance: IFOSFAMIDE
     Indication: PRODUCT USED FOR UNKNOWN INDICATION
     Dosage: UNKNOWN
     Route: 065

REACTIONS (6)
  - Nephropathy toxic [Recovering/Resolving]
  - Pyuria [Recovering/Resolving]
  - Glycosuria [Recovering/Resolving]
  - Renal tubular disorder [Recovering/Resolving]
  - Proteinuria [Recovering/Resolving]
  - Tubulointerstitial nephritis [Recovering/Resolving]
